FAERS Safety Report 6816242-1 (Version None)
Quarter: 2010Q3

REPORT INFORMATION
  Report Type: 
  Country: None (occurrence: None)
  Receive Date: 20100702
  Receipt Date: 20100702
  Transmission Date: 20110219
  Serious: No
  Sender: FDA-Public Use
  Company Number: None

PATIENT
  Sex: Male
  Weight: 76 kg

DRUGS (3)
  1. CISPLATIN [Suspect]
     Dosage: 29 MG
     Dates: end: 20100616
  2. ERBITUX [Suspect]
     Dosage: 481 MG
     Dates: end: 20100616
  3. TAXOL [Suspect]
     Indication: GASTROINTESTINAL DISORDER
     Dosage: 96 MG
     Dates: end: 20100616

REACTIONS (2)
  - MALNUTRITION [None]
  - OESOPHAGITIS [None]
